FAERS Safety Report 8537590-3 (Version None)
Quarter: 2012Q3

REPORT INFORMATION
  Report Type: 
  Country: None (occurrence: None)
  Receive Date: 20120725
  Receipt Date: 20120712
  Transmission Date: 20120928
  Serious: No
  Sender: FDA-Public Use
  Company Number: US-ASTRAZENECA-2012SE48307

PATIENT
  Age: 67 Year
  Sex: Female
  Weight: 84.4 kg

DRUGS (1)
  1. ARIMIDEX [Suspect]
     Indication: ANTIOESTROGEN THERAPY
     Route: 048

REACTIONS (13)
  - DIZZINESS [None]
  - EPISTAXIS [None]
  - PAIN [None]
  - BREAST PAIN [None]
  - HEADACHE [None]
  - FATIGUE [None]
  - PAIN IN EXTREMITY [None]
  - MUSCULOSKELETAL STIFFNESS [None]
  - ALOPECIA [None]
  - SLEEP DISORDER [None]
  - DRY MOUTH [None]
  - THROAT IRRITATION [None]
  - ARTHRALGIA [None]
